FAERS Safety Report 19083278 (Version 1)
Quarter: 2021Q2

REPORT INFORMATION
  Report Type: Spontaneous
  Country: US (occurrence: US)
  Receive Date: 20210401
  Receipt Date: 20210401
  Transmission Date: 20210717
  Serious: No
  Sender: FDA-Public Use
  Company Number: US-ASTRAZENECA-2021A099539

PATIENT

DRUGS (1)
  1. SELUMETINIB. [Suspect]
     Active Substance: SELUMETINIB
     Route: 048

REACTIONS (1)
  - Drug intolerance [Unknown]
